FAERS Safety Report 11543531 (Version 4)
Quarter: 2017Q3

REPORT INFORMATION
  Report Type: Spontaneous
  Country: DE (occurrence: DE)
  Receive Date: 20150923
  Receipt Date: 20170721
  Transmission Date: 20171127
  Serious: Yes (Congenital Anomaly, Other)
  Sender: FDA-Public Use
  Company Number: PHHY2015DE114519

PATIENT
  Sex: Female
  Weight: 1.83 kg

DRUGS (7)
  1. BECLOMETASONE [Concomitant]
     Active Substance: BECLOMETHASONE DIPROPIONATE
     Indication: FOETAL EXPOSURE DURING PREGNANCY
     Route: 064
  2. PREDNISOLONE. [Concomitant]
     Active Substance: PREDNISOLONE
     Indication: FOETAL EXPOSURE DURING PREGNANCY
     Dosage: 6 MG/DAY (MATERNAL DOSE)
     Route: 064
  3. DICLOFENAC [Suspect]
     Active Substance: DICLOFENAC
     Indication: FOETAL EXPOSURE DURING PREGNANCY
     Dosage: 75 MG TWICE DAILY (MATERNAL DOSE)
     Route: 064
  4. FORMOTEROL [Concomitant]
     Active Substance: FORMOTEROL
     Indication: FOETAL EXPOSURE DURING PREGNANCY
     Route: 064
  5. DICLOFENAC [Suspect]
     Active Substance: DICLOFENAC
     Dosage: 75 MG, BID
     Route: 064
  6. SULFASALAZINE. [Concomitant]
     Active Substance: SULFASALAZINE
     Indication: FOETAL EXPOSURE DURING PREGNANCY
     Dosage: 500 MG/DAY (MATERNAL DOSE)
     Route: 064
  7. OMEPRAZOLE. [Concomitant]
     Active Substance: OMEPRAZOLE
     Indication: FOETAL EXPOSURE DURING PREGNANCY
     Dosage: 20 MG/DAY (MATERNAL DOSE)
     Route: 064

REACTIONS (3)
  - Talipes [Unknown]
  - Foetal exposure during pregnancy [Unknown]
  - Foetal growth restriction [Unknown]
